FAERS Safety Report 24868857 (Version 1)
Quarter: 2025Q1

REPORT INFORMATION
  Report Type: Spontaneous
  Country: US (occurrence: None)
  Receive Date: 20250117
  Receipt Date: 20250117
  Transmission Date: 20250409
  Serious: Yes (Hospitalization)
  Sender: FDA-CTU
  Company Number: None

PATIENT
  Age: 71 Year
  Sex: Male
  Weight: 84.6 kg

DRUGS (9)
  1. REPATHA [Suspect]
     Active Substance: EVOLOCUMAB
     Indication: Blood cholesterol increased
     Route: 058
     Dates: start: 20241201, end: 20250112
  2. VALSARTAN [Concomitant]
     Active Substance: VALSARTAN
  3. PREDNISONE [Concomitant]
     Active Substance: PREDNISONE
  4. POTASSIUM [Concomitant]
     Active Substance: POTASSIUM
  5. omeprezol [Concomitant]
  6. FUROSEMIDE [Concomitant]
     Active Substance: FUROSEMIDE
  7. EZETIMIBE [Concomitant]
     Active Substance: EZETIMIBE
  8. anoro/elipta [Concomitant]
  9. ALBUTEROL SULFATE [Concomitant]
     Active Substance: ALBUTEROL SULFATE

REACTIONS (3)
  - Respiratory tract congestion [None]
  - Dyspnoea [None]
  - Respiratory tract infection [None]

NARRATIVE: CASE EVENT DATE: 20250104
